FAERS Safety Report 8525983-X (Version None)
Quarter: 2012Q3

REPORT INFORMATION
  Report Type: 
  Country: None (occurrence: None)
  Receive Date: 20120720
  Receipt Date: 20110429
  Transmission Date: 20120928
  Serious: Yes (Other)
  Sender: FDA-Public Use
  Company Number: PHHY2012KR046631

PATIENT

DRUGS (4)
  1. CAPECITABINE [Suspect]
     Indication: METASTATIC GASTRIC CANCER
     Dosage: 500 MG/M2, Q12H
  2. EVEROLIMUS [Suspect]
     Indication: METASTATIC GASTRIC CANCER
     Dosage: 5 MG, Q12H
     Route: 048
  3. CAPECITABINE [Suspect]
     Dosage: 750 MG/M2, Q12H
  4. CAPECITABINE [Suspect]
     Dosage: 650 MG/M2, Q12H

REACTIONS (2)
  - HYPERGLYCAEMIA [None]
  - HYPONATRAEMIA [None]
